FAERS Safety Report 7761718-6 (Version None)
Quarter: 2011Q3

REPORT INFORMATION
  Report Type: 
  Country: None (occurrence: None)
  Receive Date: 20110920
  Receipt Date: 20110912
  Transmission Date: 20111222
  Serious: Yes (Other)
  Sender: FDA-Public Use
  Company Number: PHHY2011DE42424

PATIENT
  Sex: Male
  Weight: 95 kg

DRUGS (1)
  1. EXTAVIA [Suspect]
     Indication: MULTIPLE SCLEROSIS
     Dosage: 250 UG, QOD
     Route: 058
     Dates: start: 20110428

REACTIONS (16)
  - HEPATITIS B ANTIGEN POSITIVE [None]
  - SERUM FERRITIN INCREASED [None]
  - INFLUENZA LIKE ILLNESS [None]
  - GASTRITIS [None]
  - C-REACTIVE PROTEIN INCREASED [None]
  - DIZZINESS [None]
  - VISUAL IMPAIRMENT [None]
  - WHITE BLOOD CELL COUNT INCREASED [None]
  - HAEMOGLOBIN DECREASED [None]
  - LIVER FUNCTION TEST ABNORMAL [None]
  - INJECTION SITE PAIN [None]
  - ABDOMINAL PAIN UPPER [None]
  - INJECTION SITE ERYTHEMA [None]
  - PLATELET COUNT DECREASED [None]
  - MULTIPLE SCLEROSIS RELAPSE [None]
  - INJECTION SITE HAEMATOMA [None]
